FAERS Safety Report 22367861 (Version 1)
Quarter: 2023Q2

REPORT INFORMATION
  Report Type: Spontaneous
  Country: US (occurrence: US)
  Receive Date: 20230525
  Receipt Date: 20230525
  Transmission Date: 20230722
  Serious: No
  Sender: FDA-Public Use
  Company Number: US-UCBSA-2022035027

PATIENT
  Sex: Female

DRUGS (13)
  1. CIMZIA [Suspect]
     Active Substance: CERTOLIZUMAB PEGOL
     Indication: Rheumatoid arthritis
     Dosage: 400 MILLIGRAM, EV 2 WEEKS(QOW)
     Route: 058
     Dates: start: 2012
  2. OYSTER SHELL CALCIUM WITH VITAMIN D [CALCIUM;COLECALCIFEROL] [Concomitant]
     Indication: Product used for unknown indication
  3. ASPIRIN [Concomitant]
     Active Substance: ASPIRIN
     Indication: Product used for unknown indication
  4. METHOTREXATE [Concomitant]
     Active Substance: METHOTREXATE
     Indication: Product used for unknown indication
     Dosage: 2.5 MILLIGRAM
  5. VITAMIN D3 [Concomitant]
     Active Substance: CHOLECALCIFEROL
     Indication: Product used for unknown indication
     Dosage: 2000 UNIT SOFTGEL
  6. CITALOPRAM [Concomitant]
     Active Substance: CITALOPRAM HYDROBROMIDE
     Indication: Product used for unknown indication
     Dosage: 10 MILLIGRAM
  7. FISH OIL [Concomitant]
     Active Substance: FISH OIL
     Indication: Product used for unknown indication
     Dosage: 100 MILLIGRAM
  8. METHYLCOBALAMIN [Concomitant]
     Active Substance: METHYLCOBALAMIN
     Indication: Product used for unknown indication
     Dosage: 1000 MICROGRAM
  9. AMLODIPINE BESYLATE [Concomitant]
     Active Substance: AMLODIPINE BESYLATE
     Indication: Product used for unknown indication
     Dosage: 5 MILLIGRAM
  10. EVOXAC [Concomitant]
     Active Substance: CEVIMELINE HYDROCHLORIDE
     Indication: Product used for unknown indication
     Dosage: 30 MILLIGRAM
  11. ACETAMINOPHEN\TRAMADOL [Concomitant]
     Active Substance: ACETAMINOPHEN\TRAMADOL
     Indication: Product used for unknown indication
  12. OCUVITE ADULT 50+ [ASCORBIC ACID;COPPER GLUCONATE;FISH OIL;TOCOPHEROL; [Concomitant]
     Indication: Product used for unknown indication
  13. CELEBREX [Concomitant]
     Active Substance: CELECOXIB
     Indication: Product used for unknown indication

REACTIONS (1)
  - COVID-19 [Unknown]
